FAERS Safety Report 8965583 (Version 1)
Quarter: 2012Q4

REPORT INFORMATION
  Report Type: Spontaneous
  Country: US (occurrence: None)
  Receive Date: 20121212
  Receipt Date: 20121212
  Transmission Date: 20130627
  Serious: Yes (Other)
  Sender: FDA-Public Use
  Company Number: None

PATIENT
  Age: 49 Year
  Sex: Female
  Weight: 56.7 kg

DRUGS (2)
  1. ADVIL [Suspect]
     Indication: FEVER
     Dosage: October
teaspoon   Daily
  2. ADVIL [Suspect]
     Indication: PAIN
     Dosage: October
teaspoon   Daily

REACTIONS (3)
  - Product taste abnormal [None]
  - Oral discomfort [None]
  - Glossodynia [None]
